FAERS Safety Report 4920353-5 (Version None)
Quarter: 2006Q1

REPORT INFORMATION
  Report Type: 
  Country: None (occurrence: None)
  Receive Date: 20060223
  Receipt Date: 20050607
  Transmission Date: 20060701
  Serious: Yes (Hospitalization)
  Sender: FDA-Public Use
  Company Number: US-MERCK-0506USA01116

PATIENT
  Age: 44 Year
  Sex: Male

DRUGS (4)
  1. VIOXX [Suspect]
     Indication: OSTEOARTHRITIS
     Route: 048
     Dates: end: 20030601
  2. VIOXX [Suspect]
     Route: 048
     Dates: start: 20021023
  3. VIOXX [Suspect]
     Route: 048
     Dates: end: 20030601
  4. VIOXX [Suspect]
     Route: 048
     Dates: start: 20021023

REACTIONS (26)
  - ACUTE CORONARY SYNDROME [None]
  - ACUTE MYOCARDIAL INFARCTION [None]
  - AKINESIA [None]
  - CARDIAC ARREST [None]
  - CARDIOMYOPATHY [None]
  - CHEST PAIN [None]
  - CORONARY ARTERY DISEASE [None]
  - CORONARY ARTERY STENOSIS [None]
  - COUGH [None]
  - DIABETIC NEUROPATHY [None]
  - DRUG EFFECT DECREASED [None]
  - ERECTILE DYSFUNCTION [None]
  - HEART RATE INCREASED [None]
  - LIMB DISCOMFORT [None]
  - MUSCULOSKELETAL DISCOMFORT [None]
  - MYOCARDIAL INFARCTION [None]
  - PALPITATIONS [None]
  - PRESCRIBED OVERDOSE [None]
  - RASH [None]
  - SINUSITIS [None]
  - THROMBOPHLEBITIS SUPERFICIAL [None]
  - VENTRICULAR ARRHYTHMIA [None]
  - VENTRICULAR FIBRILLATION [None]
  - VENTRICULAR HYPOKINESIA [None]
  - VENTRICULAR TACHYCARDIA [None]
  - VOMITING [None]
